FAERS Safety Report 10191996 (Version 3)
Quarter: 2015Q1

REPORT INFORMATION
  Report Type: Spontaneous
  Country: US (occurrence: US)
  Receive Date: 20140523
  Receipt Date: 20150122
  Transmission Date: 20150720
  Serious: No
  Sender: FDA-Public Use
  Company Number: US-JNJFOC-20140510174

PATIENT
  Age: 21 Year
  Sex: Male
  Weight: 81.65 kg

DRUGS (6)
  1. PRAZOSIN [Concomitant]
     Active Substance: PRAZOSIN
     Route: 065
  2. HYDROXYZINE [Concomitant]
     Active Substance: HYDROXYZINE\HYDROXYZINE HYDROCHLORIDE
     Indication: NAUSEA
     Route: 065
     Dates: start: 20130405
  3. OLANZAPINE. [Concomitant]
     Active Substance: OLANZAPINE
     Route: 048
  4. DIPHENHYDRAMINE [Concomitant]
     Active Substance: DIPHENHYDRAMINE
     Route: 065
  5. INVEGA SUSTENNA [Suspect]
     Active Substance: PALIPERIDONE PALMITATE
     Indication: PRODUCT USED FOR UNKNOWN INDICATION
     Dosage: 117 MG AND 78 MG
     Route: 030
     Dates: start: 20120601, end: 20140512
  6. TRAZADOL [Concomitant]
     Indication: INSOMNIA
     Dates: start: 20130912

REACTIONS (2)
  - Local reaction [Recovered/Resolved]
  - Injection site hypersensitivity [Recovered/Resolved]

NARRATIVE: CASE EVENT DATE: 201404
